FAERS Safety Report 7107108-0 (Version None)
Quarter: 2010Q4

REPORT INFORMATION
  Report Type: 
  Country: None (occurrence: None)
  Receive Date: 20101116
  Receipt Date: 20101006
  Transmission Date: 20110411
  Serious: No
  Sender: FDA-Public Use
  Company Number: US-ABBOTT-10P-163-0676080-00

PATIENT
  Sex: Male
  Weight: 99.88 kg

DRUGS (5)
  1. SIMCOR [Suspect]
     Indication: HYPERLIPIDAEMIA
     Dosage: 500/20 AT HS
     Dates: start: 20100929
  2. EXCEDRIN (MIGRAINE) [Concomitant]
     Indication: PRODUCT USED FOR UNKNOWN INDICATION
  3. VICODIN [Concomitant]
     Indication: ARTHRALGIA
     Dosage: PRN, RIGHT KNEE AND LEFT ELBOW PAIN
  4. VICODIN [Concomitant]
  5. ANTI-INFLAMMATORY [Concomitant]
     Indication: ARTHRALGIA
     Dosage: LEFT ELBOW PAIN

REACTIONS (1)
  - FLUSHING [None]
